FAERS Safety Report 9441936 (Version 1)
Quarter: 2013Q3

REPORT INFORMATION
  Report Type: Spontaneous
  Country: GB (occurrence: None)
  Receive Date: 20130801
  Receipt Date: 20130801
  Transmission Date: 20140515
  Serious: Yes (Other)
  Sender: FDA-Public Use
  Company Number: GER/UKI/13/0033247

PATIENT
  Age: 38 Year
  Sex: Female
  Weight: 63 kg

DRUGS (3)
  1. SERTRALINE (SERTRALINE) [Suspect]
     Indication: DEPRESSION
     Route: 048
     Dates: start: 20130618, end: 20130628
  2. CITALOPRAM (CITALOPRAM) [Concomitant]
  3. HYDROXYCHLOROQUINE (HYDROXYCHLOROQUINE) [Concomitant]

REACTIONS (6)
  - Abdominal pain [None]
  - Dry eye [None]
  - Headache [None]
  - Nausea [None]
  - Malaise [None]
  - Oral mucosal blistering [None]
